FAERS Safety Report 11388098 (Version 1)
Quarter: 2015Q3

REPORT INFORMATION
  Report Type: Report from Study
  Country: US (occurrence: US)
  Receive Date: 20150817
  Receipt Date: 20150817
  Transmission Date: 20151125
  Serious: Yes (Hospitalization, Other)
  Sender: FDA-Public Use
  Company Number: US-GLAXOSMITHKLINE-US2015GSK116404

PATIENT
  Age: 60 Year
  Sex: Female
  Weight: 67.2 kg

DRUGS (3)
  1. PAZOPANIB [Suspect]
     Active Substance: PAZOPANIB
     Indication: MALIGNANT PERITONEAL NEOPLASM
     Dosage: UNK
     Route: 048
     Dates: start: 201407
  2. NEXIUM [Concomitant]
     Active Substance: ESOMEPRAZOLE MAGNESIUM
  3. GEMCITABINE [Suspect]
     Active Substance: GEMCITABINE\GEMCITABINE HYDROCHLORIDE
     Indication: MALIGNANT PERITONEAL NEOPLASM
     Dosage: UNK
     Route: 042
     Dates: start: 201407

REACTIONS (6)
  - Abdominal pain [Recovering/Resolving]
  - Tachycardia [Recovering/Resolving]
  - Vomiting [Recovering/Resolving]
  - Oesophagitis ulcerative [Recovering/Resolving]
  - Ascites [Recovering/Resolving]
  - Nausea [Recovering/Resolving]

NARRATIVE: CASE EVENT DATE: 20150719
